FAERS Safety Report 8916145 (Version 1)
Quarter: 2012Q4

REPORT INFORMATION
  Report Type: 
  Country: US (occurrence: US)
  Receive Date: 20121120
  Receipt Date: 20121120
  Transmission Date: 20130627
  Serious: Yes (Hospitalization)
  Sender: FDA-Public Use
  Company Number: US-GLAXOSMITHKLINE-A0886594A

PATIENT
  Age: 55 Year
  Sex: Male
  Weight: 200 kg

DRUGS (1)
  1. AVANDIA [Suspect]
     Indication: DIABETES MELLITUS
     Route: 048
     Dates: start: 20000216, end: 20060316

REACTIONS (7)
  - Pulmonary embolism [Recovering/Resolving]
  - Myocardial infarction [Unknown]
  - Cardiac failure [Unknown]
  - Cardiac operation [Unknown]
  - Weight increased [Unknown]
  - Coronary artery disease [Unknown]
  - Myocardial ischaemia [Unknown]
